FAERS Safety Report 5947861-2 (Version None)
Quarter: 2008Q4

REPORT INFORMATION
  Report Type: 
  Country: None (occurrence: None)
  Receive Date: 20081111
  Receipt Date: 20081104
  Transmission Date: 20090506
  Serious: Yes (Hospitalization, Other)
  Sender: FDA-Public Use
  Company Number: US-BAYER-200837300NA

PATIENT
  Age: 73 Year
  Sex: Female
  Weight: 106 kg

DRUGS (11)
  1. NEXAVAR [Suspect]
     Indication: RENAL CANCER
     Route: 048
     Dates: start: 20070620, end: 20070701
  2. SUTENT [Suspect]
     Indication: RENAL CANCER
     Dosage: TOTAL DAILY DOSE: 50 MG
     Dates: start: 20070305, end: 20070310
  3. SUTENT [Suspect]
     Dosage: TOTAL DAILY DOSE: 50 MG
     Dates: start: 20070430, end: 20070510
  4. TEMSIROLIMUS [Suspect]
     Indication: RENAL CANCER
     Dates: start: 20070101, end: 20070101
  5. PROLEUKIN [Suspect]
     Indication: DRUG USE FOR UNKNOWN INDICATION
     Route: 058
     Dates: start: 20080101
  6. PROLEUKIN [Suspect]
     Route: 058
     Dates: start: 20080101
  7. PROLEUKIN [Suspect]
     Route: 058
     Dates: start: 20080101
  8. AVAPRO [Concomitant]
     Indication: BLOOD PRESSURE MANAGEMENT
     Dosage: TOTAL DAILY DOSE: 300 MG
  9. SYNTHROID [Concomitant]
     Indication: THYROID DISORDER
     Dosage: TOTAL DAILY DOSE: 0.125 MG
  10. SPIRIVA [Concomitant]
     Indication: DYSPNOEA
     Route: 055
  11. IPRATROPIUM BROMIDE [Concomitant]
     Route: 045

REACTIONS (12)
  - ANOREXIA [None]
  - ASTHENIA [None]
  - CHILLS [None]
  - CONSTIPATION [None]
  - DIARRHOEA [None]
  - DYSARTHRIA [None]
  - FATIGUE [None]
  - LOSS OF CONSCIOUSNESS [None]
  - MALAISE [None]
  - NAUSEA [None]
  - NEPHRECTOMY [None]
  - VOMITING [None]
